FAERS Safety Report 23693961 (Version 4)
Quarter: 2024Q2

REPORT INFORMATION
  Report Type: Spontaneous
  Country: NL (occurrence: NL)
  Receive Date: 20240401
  Receipt Date: 20240422
  Transmission Date: 20240716
  Serious: Yes (Other)
  Sender: FDA-Public Use
  Company Number: NL-KRKA-NL2024K04166LIT

PATIENT
  Age: 74 Year
  Sex: Male

DRUGS (6)
  1. SUNITINIB [Suspect]
     Active Substance: SUNITINIB
     Indication: Metastatic renal cell carcinoma
     Dosage: 50 MILLIGRAM, QD (50 MG/DAY ON THE STANDARD 4-WEEK ON 2-WEEK OFF SCHEDULE)
     Route: 065
  2. SUNITINIB [Suspect]
     Active Substance: SUNITINIB
     Indication: Metastases to liver
  3. SUNITINIB [Suspect]
     Active Substance: SUNITINIB
     Indication: Metastases to bone
  4. SUNITINIB [Suspect]
     Active Substance: SUNITINIB
     Indication: Metastases to lymph nodes
  5. PANTOPRAZOLE [Concomitant]
     Active Substance: PANTOPRAZOLE
     Dosage: UNK
     Route: 065
  6. ACETAMINOPHEN [Concomitant]
     Active Substance: ACETAMINOPHEN
     Dosage: UNK
     Route: 065

REACTIONS (5)
  - Vogt-Koyanagi-Harada disease [Recovered/Resolved]
  - Retinal oedema [Recovered/Resolved]
  - Serous retinal detachment [Recovered/Resolved]
  - Subretinal fluid [Recovered/Resolved]
  - Visual acuity reduced [Recovered/Resolved]
